FAERS Safety Report 9156158 (Version 3)
Quarter: 2016Q4

REPORT INFORMATION
  Report Type: Report from Study
  Country: JP (occurrence: JP)
  Receive Date: 20130311
  Receipt Date: 20161227
  Transmission Date: 20170207
  Serious: Yes (Death, Other)
  Sender: FDA-Public Use
  Company Number: JP-OTSUKA-JP-2013-10596

PATIENT
  Age: 76 Year
  Sex: Female
  Weight: 35.7 kg

DRUGS (6)
  1. PREDNISOLONE. [Concomitant]
     Active Substance: PREDNISOLONE
     Indication: PRODUCT USED FOR UNKNOWN INDICATION
     Dosage: 10 MG, QD
     Route: 048
     Dates: end: 20120910
  2. MEVALOTIN [Concomitant]
     Active Substance: PRAVASTATIN SODIUM
     Indication: PRODUCT USED FOR UNKNOWN INDICATION
     Dosage: 10 MG, QD
     Route: 048
     Dates: end: 20120910
  3. GASTER [Concomitant]
     Active Substance: FAMOTIDINE
     Indication: PROPHYLAXIS
     Dosage: 10 MG, QD
     Route: 048
     Dates: end: 20120910
  4. TOLVAPTAN [Suspect]
     Active Substance: TOLVAPTAN
     Indication: FLUID RETENTION
     Dosage: 7.5 MG, QD
     Route: 048
     Dates: start: 20120802, end: 20120910
  5. LUPRAC [Concomitant]
     Active Substance: TORSEMIDE
     Indication: CARDIAC FAILURE
     Dosage: 4 MG, QD
     Route: 048
     Dates: end: 20120910
  6. DORNER [Concomitant]
     Active Substance: BERAPROST SODIUM
     Indication: PRODUCT USED FOR UNKNOWN INDICATION
     Dosage: 120 ?G, QD
     Route: 048
     Dates: end: 20120910

REACTIONS (2)
  - Infection [Unknown]
  - Cardiac failure [Fatal]

NARRATIVE: CASE EVENT DATE: 20120910
